FAERS Safety Report 19132846 (Version 1)
Quarter: 2021Q2

REPORT INFORMATION
  Report Type: Spontaneous
  Country: US (occurrence: US)
  Receive Date: 20210413
  Receipt Date: 20210413
  Transmission Date: 20210717
  Serious: No
  Sender: FDA-Public Use
  Company Number: US-ELI_LILLY_AND_COMPANY-US202104004094

PATIENT
  Sex: Female

DRUGS (1)
  1. EMGALITY [Suspect]
     Active Substance: GALCANEZUMAB-GNLM
     Indication: PRODUCT USED FOR UNKNOWN INDICATION
     Dosage: 240 MG, SINGLE
     Route: 065

REACTIONS (7)
  - Blepharospasm [Unknown]
  - Dizziness [Unknown]
  - Eye pruritus [Unknown]
  - Dysgeusia [Unknown]
  - Injection site warmth [Unknown]
  - Underdose [Unknown]
  - Injection site pain [Unknown]
